FAERS Safety Report 6861081-9 (Version None)
Quarter: 2010Q3

REPORT INFORMATION
  Report Type: 
  Country: None (occurrence: None)
  Receive Date: 20100720
  Receipt Date: 20100713
  Transmission Date: 20110219
  Serious: Yes (Hospitalization)
  Sender: FDA-Public Use
  Company Number: PHHO2010JP10795

PATIENT
  Sex: Male
  Weight: 58 kg

DRUGS (21)
  1. CERTICAN [Suspect]
     Indication: RENAL TRANSPLANT
     Dosage: 1.5 MG
     Route: 048
     Dates: start: 20090117, end: 20090123
  2. CERTICAN [Suspect]
     Dosage: 3 MG
     Route: 048
     Dates: start: 20090124, end: 20090210
  3. CERTICAN [Suspect]
     Dosage: 1.5 MG
     Route: 048
     Dates: start: 20090211, end: 20090211
  4. CERTICAN [Suspect]
     Dosage: 1.5 MG
     Route: 048
     Dates: start: 20090216, end: 20090216
  5. CERTICAN [Suspect]
     Dosage: 3 MG
     Route: 048
     Dates: start: 20090217, end: 20090311
  6. CERTICAN [Suspect]
     Dosage: 1.5 MG
     Route: 048
     Dates: start: 20090312, end: 20090312
  7. CERTICAN [Suspect]
     Dosage: 2 MG
     Route: 048
     Dates: start: 20090330
  8. NEORAL [Suspect]
     Indication: RENAL TRANSPLANT
     Dosage: 460 MG
     Route: 048
     Dates: start: 20090115
  9. NEORAL [Suspect]
     Dosage: 265 MG
     Route: 048
     Dates: end: 20090313
  10. NEORAL [Suspect]
     Dosage: 250 MG
     Route: 048
     Dates: start: 20090313
  11. PREDNISOLONE [Suspect]
     Indication: RENAL TRANSPLANT
     Dosage: 10 MG
     Route: 048
     Dates: start: 20090204, end: 20090311
  12. PREDNISOLONE [Suspect]
     Dosage: 9 MG
     Route: 048
     Dates: start: 20090312
  13. SIMULECT [Concomitant]
     Indication: RENAL TRANSPLANT
  14. COTRIM [Concomitant]
     Indication: ANTIFUNGAL PROPHYLAXIS
  15. DENOSINE [Concomitant]
     Indication: CYTOMEGALOVIRUS INFECTION
  16. DIOVAN [Concomitant]
     Indication: HYPERTENSION
  17. FLUVASTATIN [Concomitant]
     Indication: HYPERCHOLESTEROLAEMIA
  18. ARTIST [Concomitant]
     Indication: HYPERTENSION
  19. ISODINE [Concomitant]
  20. TAKEPRON [Concomitant]
     Indication: PROPHYLAXIS AGAINST GASTROINTESTINAL ULCER
  21. ACUATIM [Concomitant]
     Indication: ACNE

REACTIONS (3)
  - GINGIVAL ERYTHEMA [None]
  - GINGIVAL SWELLING [None]
  - WISDOM TEETH REMOVAL [None]
